FAERS Safety Report 7114726-2 (Version None)
Quarter: 2010Q4

REPORT INFORMATION
  Report Type: 
  Country: None (occurrence: None)
  Receive Date: 20101122
  Receipt Date: 20101111
  Transmission Date: 20110411
  Serious: No
  Sender: FDA-Public Use
  Company Number: US-BIOGENIDEC-2009BI028078

PATIENT
  Sex: Female

DRUGS (1)
  1. TYSABRI [Suspect]
     Indication: MULTIPLE SCLEROSIS
     Route: 042
     Dates: start: 20080605, end: 20100801

REACTIONS (15)
  - BACK PAIN [None]
  - BLADDER DISORDER [None]
  - DIABETES MELLITUS [None]
  - DISTURBANCE IN ATTENTION [None]
  - DYSPEPSIA [None]
  - FATIGUE [None]
  - HERPES ZOSTER [None]
  - MEMORY IMPAIRMENT [None]
  - MOBILITY DECREASED [None]
  - NASOPHARYNGITIS [None]
  - PALPITATIONS [None]
  - POOR VENOUS ACCESS [None]
  - RENAL PAIN [None]
  - URINE ODOUR ABNORMAL [None]
  - VEIN DISORDER [None]
